FAERS Safety Report 15003084 (Version 2)
Quarter: 2018Q3

REPORT INFORMATION
  Report Type: Report from Study
  Country: CA (occurrence: CA)
  Receive Date: 20180612
  Receipt Date: 20180817
  Transmission Date: 20181010
  Serious: Yes (Life-Threatening)
  Sender: FDA-Public Use
  Company Number: CA-HLSUS-2018-CA-000902

PATIENT
  Sex: Male

DRUGS (1)
  1. CLOZARIL [Suspect]
     Active Substance: CLOZAPINE
     Indication: THINKING ABNORMAL
     Dosage: 600 MG 1 EVERY 1 DAY
     Route: 048

REACTIONS (2)
  - Product use in unapproved indication [Unknown]
  - Agranulocytosis [Unknown]
